FAERS Safety Report 7967768-9 (Version None)
Quarter: 2011Q4

REPORT INFORMATION
  Report Type: 
  Country: None (occurrence: None)
  Receive Date: 20111209
  Receipt Date: 20111205
  Transmission Date: 20120403
  Serious: No
  Sender: FDA-Public Use
  Company Number: US-BAYER-2011-117803

PATIENT

DRUGS (3)
  1. IBUPROFEN (ADVIL) [Concomitant]
  2. EXCEDRIN [ACETYLSALICYLIC ACID,CAFFEINE,PARACETAMOL] [Concomitant]
  3. ALEVE (CAPLET) [Suspect]

REACTIONS (1)
  - NO ADVERSE EVENT [None]
